FAERS Safety Report 4860970-4 (Version None)
Quarter: 2005Q4

REPORT INFORMATION
  Report Type: 
  Country: None (occurrence: None)
  Receive Date: 20051216
  Receipt Date: 20051207
  Transmission Date: 20060501
  Serious: Yes (Life-Threatening)
  Sender: FDA-Public Use
  Company Number: 200510833BFR

PATIENT
  Age: 52 Year
  Sex: Male

DRUGS (13)
  1. CIPROFLOXACIN [Suspect]
     Dosage: ORAL
     Route: 048
     Dates: start: 20050925, end: 20050930
  2. IMOVANE (ZOPICLONE) [Suspect]
     Dosage: 7.5 MG, QD, ORAL
     Route: 048
     Dates: start: 20050101, end: 20050801
  3. IMOVANE (ZOPICLONE) [Suspect]
     Dosage: 7.5 MG, QD, ORAL
     Route: 048
     Dates: start: 20050922, end: 20051003
  4. LAMICTAL [Suspect]
     Indication: HEAD INJURY
     Dosage: 50 MG, QD, ORAL
     Route: 048
     Dates: start: 20050907, end: 20050901
  5. LAMICTAL [Suspect]
     Indication: HEAD INJURY
     Dosage: 50 MG, QD, ORAL
     Route: 048
     Dates: start: 20050901, end: 20050913
  6. LAMICTAL [Suspect]
     Indication: HEAD INJURY
     Dosage: 50 MG, QD, ORAL
     Route: 048
     Dates: start: 20050913, end: 20051003
  7. LAMICTAL [Suspect]
     Indication: HEAD INJURY
     Dosage: 50 MG, QD, ORAL
     Route: 048
     Dates: start: 20050901
  8. DEPAKENE [Suspect]
     Indication: HEAD INJURY
     Dosage: 500 MG, BID, ORAL
     Route: 048
  9. STABLON (TIANEPTINE) [Suspect]
     Dosage: 12.5 MG, ORAL
     Route: 048
  10. XENETIX (IOBITRIDOL) [Suspect]
     Indication: ABDOMEN SCAN
     Dates: start: 20050920
  11. XENETIX (IOBITRIDOL) [Suspect]
     Indication: ABDOMEN SCAN
     Dates: start: 20051003
  12. FOSAMAX [Concomitant]
  13. OROCAL D (3) [Concomitant]

REACTIONS (21)
  - BLOOD PH INCREASED [None]
  - BRONCHITIS [None]
  - CHILLS [None]
  - COUGH [None]
  - DECUBITUS ULCER [None]
  - DISEASE RECURRENCE [None]
  - DRUG ERUPTION [None]
  - DYSPHAGIA [None]
  - EOSINOPHILIA [None]
  - GASTROOESOPHAGEAL REFLUX DISEASE [None]
  - HEART RATE INCREASED [None]
  - LOCALISED OEDEMA [None]
  - OXYGEN SATURATION DECREASED [None]
  - PANCREATITIS ACUTE [None]
  - PCO2 DECREASED [None]
  - PRURITUS [None]
  - PYREXIA [None]
  - RASH MACULO-PAPULAR [None]
  - RASH MORBILLIFORM [None]
  - SKIN EXFOLIATION [None]
  - TONGUE ULCERATION [None]
